FAERS Safety Report 15277034 (Version 1)
Quarter: 2018Q3

REPORT INFORMATION
  Report Type: Spontaneous
  Country: US (occurrence: US)
  Receive Date: 20180729
  Receipt Date: 20180729
  Transmission Date: 20181010
  Serious: Yes (Other)
  Sender: FDA-Public Use
  Company Number: None

PATIENT
  Age: 67 Year
  Sex: Female
  Weight: 63.45 kg

DRUGS (19)
  1. GLIMEPIRIDE. [Suspect]
     Active Substance: GLIMEPIRIDE
     Indication: BLOOD GLUCOSE INCREASED
     Dosage: ?          QUANTITY:2 TABLET(S);?
     Route: 048
     Dates: start: 20171117, end: 20180511
  2. LYRICA [Concomitant]
     Active Substance: PREGABALIN
  3. ONE A DAY 50+ WOMENS VITAMINS [Concomitant]
  4. CHONDROITIN WITH MSM [Concomitant]
  5. METFORMIN [Concomitant]
     Active Substance: METFORMIN HYDROCHLORIDE
  6. METOPROLOL. [Concomitant]
     Active Substance: METOPROLOL
  7. SYMBICORT [Concomitant]
     Active Substance: BUDESONIDE\FORMOTEROL FUMARATE DIHYDRATE
  8. ENBREL SURE CLICK PRO AIR HFA [Concomitant]
  9. VENLAFAXINE [Concomitant]
     Active Substance: VENLAFAXINE HYDROCHLORIDE
  10. OMEPRAZOLE. [Concomitant]
     Active Substance: OMEPRAZOLE
  11. ENBREL [Concomitant]
     Active Substance: ETANERCEPT
  12. MELOXICAM. [Concomitant]
     Active Substance: MELOXICAM
  13. METHOTREXATE. [Concomitant]
     Active Substance: METHOTREXATE
  14. LIPITOR [Concomitant]
     Active Substance: ATORVASTATIN CALCIUM
  15. GLUCOSAMINE [Concomitant]
     Active Substance: GLUCOSAMINE
  16. ASPIRIN. [Concomitant]
     Active Substance: ASPIRIN
  17. GLIPIZIDE. [Suspect]
     Active Substance: GLIPIZIDE
     Indication: BLOOD GLUCOSE INCREASED
     Dosage: ?          QUANTITY:1 TABLET(S);?
     Route: 048
     Dates: start: 20180601, end: 20180630
  18. OXYBUTYNIN. [Concomitant]
     Active Substance: OXYBUTYNIN CHLORIDE
  19. AMITRIPTYLINE [Concomitant]
     Active Substance: AMITRIPTYLINE

REACTIONS (1)
  - Diplopia [None]

NARRATIVE: CASE EVENT DATE: 20171222
